FAERS Safety Report 5708085-7 (Version None)
Quarter: 2008Q2

REPORT INFORMATION
  Report Type: 
  Country: None (occurrence: None)
  Receive Date: 20080414
  Receipt Date: 20080330
  Transmission Date: 20081010
  Serious: Yes (Hospitalization)
  Sender: FDA-Public Use
  Company Number: 2008BI006484

PATIENT
  Age: 32 Year
  Sex: Female
  Weight: 50 kg

DRUGS (1)
  1. TYSABRI [Suspect]
     Indication: MULTIPLE SCLEROSIS
     Dosage: 300 MG; QM; IV
     Route: 042
     Dates: start: 20080310, end: 20080310

REACTIONS (8)
  - ARRHYTHMIA [None]
  - FATIGUE [None]
  - MALAISE [None]
  - MONOPLEGIA [None]
  - ORTHOSTATIC HYPOTENSION [None]
  - PALLOR [None]
  - SYNCOPE [None]
  - VOMITING [None]
